FAERS Safety Report 5281820-0 (Version None)
Quarter: 2007Q1

REPORT INFORMATION
  Report Type: 
  Country: None (occurrence: None)
  Receive Date: 20070330
  Receipt Date: 20070322
  Transmission Date: 20070707
  Serious: Yes (Other)
  Sender: FDA-Public Use
  Company Number: US-ABBOTT-07P-163-0363448-00

PATIENT
  Sex: Female

DRUGS (1)
  1. NORVIR [Suspect]
     Indication: HIV INFECTION

REACTIONS (1)
  - ABORTION INDUCED [None]
